FAERS Safety Report 8119599-7 (Version None)
Quarter: 2012Q1

REPORT INFORMATION
  Report Type: 
  Country: None (occurrence: None)
  Receive Date: 20120207
  Receipt Date: 20120206
  Transmission Date: 20120608
  Serious: Yes (Death)
  Sender: FDA-Public Use
  Company Number: JP-JNJFOC-20120104052

PATIENT
  Age: 70 Year
  Sex: Male

DRUGS (3)
  1. LEVOFLOXACIN [Suspect]
     Route: 041
     Dates: start: 20111210, end: 20111210
  2. KENKETSU GLOVENIN-I-NICHIYAKU [Concomitant]
     Route: 065
     Dates: start: 20111209, end: 20111210
  3. LEVOFLOXACIN [Suspect]
     Indication: PNEUMONIA
     Route: 041
     Dates: start: 20111209, end: 20111209

REACTIONS (1)
  - PNEUMONIA [None]
